FAERS Safety Report 7580292-0 (Version None)
Quarter: 2011Q2

REPORT INFORMATION
  Report Type: 
  Country: None (occurrence: None)
  Receive Date: 20110629
  Receipt Date: 20100212
  Transmission Date: 20111010
  Serious: No
  Sender: FDA-Public Use
  Company Number: US-BAYER-201014621NA

PATIENT
  Age: 23 Year
  Sex: Female
  Weight: 40.816 kg

DRUGS (1)
  1. MIRENA [Suspect]
     Indication: CONTRACEPTION
     Dosage: 20 MCG/24HR, CONT
     Route: 015
     Dates: start: 20090101

REACTIONS (5)
  - MENORRHAGIA [None]
  - AMENORRHOEA [None]
  - HYPOMENORRHOEA [None]
  - METRORRHAGIA [None]
  - VAGINAL INFECTION [None]
